FAERS Safety Report 4535350-1 (Version None)
Quarter: 2004Q4

REPORT INFORMATION
  Report Type: 
  Country: None (occurrence: None)
  Receive Date: 20041222
  Receipt Date: 20041213
  Transmission Date: 20050328
  Serious: Yes (Hospitalization)
  Sender: FDA-Public Use
  Company Number: FR-JNJFOC-20041000039

PATIENT
  Age: 56 Year
  Sex: Male
  Weight: 65 kg

DRUGS (12)
  1. RISPERDAL [Suspect]
     Route: 049
  2. RISPERDAL [Suspect]
     Route: 049
  3. RISPERDAL [Suspect]
     Route: 049
  4. TERCIAN [Concomitant]
  5. ATHYMIL [Concomitant]
  6. SERESTA [Concomitant]
  7. DEPAKOTE [Concomitant]
  8. STILNOX [Concomitant]
  9. NICOBION [Concomitant]
  10. NOVONORM [Concomitant]
  11. GLUCOPHAGE [Concomitant]
  12. INSULIN MIXTARD [Concomitant]

REACTIONS (2)
  - HYPONATRAEMIA [None]
  - INFECTION [None]
